FAERS Safety Report 4480104-8 (Version None)
Quarter: 2004Q4

REPORT INFORMATION
  Report Type: 
  Country: None (occurrence: None)
  Receive Date: 20041018
  Receipt Date: 20041004
  Transmission Date: 20050328
  Serious: Yes (Other)
  Sender: FDA-Public Use
  Company Number: M2004.1511

PATIENT
  Age: 14 Year
  Sex: Female
  Weight: 40 kg

DRUGS (4)
  1. ISONIAZID (NYDRAZID) [Suspect]
     Indication: PULMONARY TUBERCULOSIS
     Dosage: 300 MG/DAY, ORAL
     Route: 048
  2. RIFAMPIN [Suspect]
     Indication: PULMONARY TUBERCULOSIS
     Dosage: 450 MG/DAY, ORAL
     Route: 048
  3. ETHAMBUTOL HCL [Suspect]
     Indication: PULMONARY TUBERCULOSIS
     Dosage: SEE IMAGE
     Route: 048
  4. PYRAZINAMIDE [Suspect]
     Indication: PULMONARY TUBERCULOSIS
     Dosage: ORAL
     Route: 048

REACTIONS (9)
  - BACK PAIN [None]
  - DRUG LEVEL INCREASED [None]
  - DYSURIA [None]
  - PLATELET COUNT DECREASED [None]
  - RENAL DISORDER [None]
  - RENAL IMPAIRMENT [None]
  - RETINAL HAEMORRHAGE [None]
  - THROMBOCYTOPENIA [None]
  - VISUAL ACUITY REDUCED [None]
